FAERS Safety Report 20958702 (Version 2)
Quarter: 2022Q2

REPORT INFORMATION
  Report Type: Report from Study
  Country: US (occurrence: US)
  Receive Date: 20220614
  Receipt Date: 20220624
  Transmission Date: 20220720
  Serious: Yes (Hospitalization, Other)
  Sender: FDA-Public Use
  Company Number: US-BAYER-2022A081487

PATIENT
  Age: 68 Year
  Sex: Female

DRUGS (3)
  1. ADEMPAS [Suspect]
     Active Substance: RIOCIGUAT
     Indication: Pulmonary hypertension
     Dosage: UNK
  2. ADEMPAS [Suspect]
     Active Substance: RIOCIGUAT
     Indication: Pulmonary arterial hypertension
     Dosage: 0.5 MG, TID
     Route: 048
     Dates: start: 202206
  3. ADEMPAS [Suspect]
     Active Substance: RIOCIGUAT
     Indication: Pulmonary hypertension
     Dosage: 1.5 MG, TID
     Route: 048
     Dates: start: 20220603

REACTIONS (14)
  - Hospitalisation [None]
  - Atrial fibrillation [None]
  - Headache [None]
  - Pain [None]
  - Nausea [Not Recovered/Not Resolved]
  - Diarrhoea [None]
  - Peripheral swelling [None]
  - Hypotension [None]
  - Pallor [None]
  - Oedema peripheral [None]
  - Feeding disorder [None]
  - Blood glucose fluctuation [None]
  - Heart rate increased [None]
  - Crying [None]
